FAERS Safety Report 10233356 (Version 2)
Quarter: 2014Q3

REPORT INFORMATION
  Report Type: Spontaneous
  Country: GB (occurrence: GB)
  Receive Date: 20140612
  Receipt Date: 20140718
  Transmission Date: 20150326
  Serious: Yes (Hospitalization, Other)
  Sender: FDA-Public Use
  Company Number: GB-PFIZER INC-2014158339

PATIENT
  Age: 43 Year
  Sex: Male
  Weight: 78 kg

DRUGS (2)
  1. EFEXOR XL [Suspect]
     Active Substance: VENLAFAXINE HYDROCHLORIDE
     Indication: DEPRESSION
     Dosage: 150 MG, DAILY
     Dates: end: 20140417
  2. EFEXOR XL [Suspect]
     Active Substance: VENLAFAXINE HYDROCHLORIDE
     Indication: ANXIETY
     Dosage: 37.5 MG, DAILY
     Route: 048
     Dates: start: 20130924

REACTIONS (21)
  - Influenza like illness [Not Recovered/Not Resolved]
  - Suicidal ideation [Recovered/Resolved]
  - Anxiety [Unknown]
  - Drug dependence [Unknown]
  - Depersonalisation [Not Recovered/Not Resolved]
  - Bedridden [Unknown]
  - Impaired work ability [Not Recovered/Not Resolved]
  - Diarrhoea [Not Recovered/Not Resolved]
  - Abdominal discomfort [Not Recovered/Not Resolved]
  - Aggression [Recovered/Resolved]
  - Vomiting [Not Recovered/Not Resolved]
  - Anger [Recovered/Resolved]
  - Fatigue [Not Recovered/Not Resolved]
  - Myalgia [Not Recovered/Not Resolved]
  - Drug withdrawal syndrome [Unknown]
  - Mood swings [Not Recovered/Not Resolved]
  - Dizziness [Unknown]
  - Tendon injury [Unknown]
  - Paraesthesia [Unknown]
  - Vertigo [Unknown]
  - Nausea [Not Recovered/Not Resolved]

NARRATIVE: CASE EVENT DATE: 201309
